FAERS Safety Report 8254989-3 (Version None)
Quarter: 2012Q2

REPORT INFORMATION
  Report Type: 
  Country: None (occurrence: None)
  Receive Date: 20120403
  Receipt Date: 20120316
  Transmission Date: 20120825
  Serious: No
  Sender: FDA-Public Use
  Company Number: US-JNJFOC-20120204563

PATIENT
  Sex: Male
  Weight: 83.01 kg

DRUGS (2)
  1. OXYCODONE HCL [Concomitant]
     Indication: BREAKTHROUGH PAIN
     Dosage: 10-325 MG
     Route: 048
  2. FENTANYL-100 [Suspect]
     Indication: SCIATICA
     Route: 062
     Dates: start: 20110101

REACTIONS (2)
  - WRONG TECHNIQUE IN DRUG USAGE PROCESS [None]
  - PRODUCT QUALITY ISSUE [None]
